FAERS Safety Report 4421676-9 (Version None)
Quarter: 2004Q3

REPORT INFORMATION
  Report Type: 
  Country: None (occurrence: None)
  Receive Date: 20040804
  Receipt Date: 20040722
  Transmission Date: 20050211
  Serious: Yes (Death)
  Sender: FDA-Public Use
  Company Number: T01-USA-01571-01

PATIENT
  Age: 0 Day
  Sex: Male
  Weight: 0.855 kg

DRUGS (3)
  1. INFASURF PRESERVATIVE FREE [Suspect]
     Indication: NEONATAL RESPIRATORY DISTRESS SYNDROME
  2. SURAVNTA(BERACTANT) [Suspect]
     Indication: NEONATAL RESPIRATORY DISTRESS SYNDROME
     Dates: start: 20010624, end: 20010625
  3. INDOMETHACIN 25MG CAP [Concomitant]

REACTIONS (9)
  - HYDROCEPHALUS [None]
  - INTESTINAL PERFORATION [None]
  - INTRAVENTRICULAR HAEMORRHAGE NEONATAL [None]
  - NEONATAL DISORDER [None]
  - PATENT DUCTUS ARTERIOSUS REPAIR [None]
  - PLEURAL EFFUSION [None]
  - PNEUMOTHORAX [None]
  - POST PROCEDURAL COMPLICATION [None]
  - PULMONARY INTERSTITIAL EMPHYSEMA SYNDROME [None]
